FAERS Safety Report 20332340 (Version 1)
Quarter: 2022Q1

REPORT INFORMATION
  Report Type: Spontaneous
  Country: BR (occurrence: BR)
  Receive Date: 20220113
  Receipt Date: 20220113
  Transmission Date: 20220423
  Serious: Yes (Death, Hospitalization, Other)
  Sender: FDA-Public Use
  Company Number: BR-TEVA-2022-BR-1998785

PATIENT
  Age: 72 Year
  Sex: Female
  Weight: 97.6 kg

DRUGS (4)
  1. OXALIPLATIN [Suspect]
     Active Substance: OXALIPLATIN
     Indication: Colon cancer
     Route: 041
     Dates: start: 20210127, end: 20210427
  2. LEUCOVORIN [Concomitant]
     Active Substance: LEUCOVORIN
  3. FLUOROURACIL [Concomitant]
     Active Substance: FLUOROURACIL
  4. BEVACIZUMAB [Concomitant]
     Active Substance: BEVACIZUMAB

REACTIONS (8)
  - Death [Fatal]
  - Haemolytic uraemic syndrome [Unknown]
  - Post procedural haemorrhage [Unknown]
  - Thrombocytopenia [Recovered/Resolved]
  - Pyrexia [Recovered/Resolved]
  - Tremor [Recovered/Resolved]
  - Vomiting [Recovered/Resolved]
  - Gastric mucosal lesion [Unknown]

NARRATIVE: CASE EVENT DATE: 20210427
